FAERS Safety Report 11409286 (Version 2)
Quarter: 2015Q3

REPORT INFORMATION
  Report Type: Spontaneous
  Country: IN (occurrence: IN)
  Receive Date: 20150824
  Receipt Date: 20150901
  Transmission Date: 20151125
  Serious: Yes (Other)
  Sender: FDA-Public Use
  Company Number: IN-AUROBINDO-AUR-APL-2015-07075

PATIENT
  Age: 13 Year
  Sex: Female

DRUGS (2)
  1. ZONISAMIDE. [Concomitant]
     Active Substance: ZONISAMIDE
     Indication: EPILEPSY
     Route: 065
  2. DIVALPROEX 500MG [Suspect]
     Active Substance: DIVALPROEX SODIUM
     Indication: EPILEPSY
     Dosage: 500 MG, TWO TIMES A DAY
     Route: 065

REACTIONS (9)
  - Headache [Recovered/Resolved]
  - Optic atrophy [Recovered/Resolved]
  - Gait disturbance [Recovered/Resolved]
  - Myoclonic epilepsy and ragged-red fibres [Recovered/Resolved]
  - Reading disorder [Recovered/Resolved]
  - Deafness [Recovered/Resolved]
  - Deafness neurosensory [Recovered/Resolved]
  - Cognitive disorder [Recovered/Resolved]
  - Blood lactic acid increased [Recovered/Resolved]
